FAERS Safety Report 7780567-6 (Version None)
Quarter: 2011Q3

REPORT INFORMATION
  Report Type: 
  Country: None (occurrence: None)
  Receive Date: 20110923
  Receipt Date: 20110910
  Transmission Date: 20111222
  Serious: Yes (Hospitalization)
  Sender: FDA-Public Use
  Company Number: 2011AP002033

PATIENT
  Age: 83 Year
  Sex: Female

DRUGS (6)
  1. ROSUVASTATIN [Concomitant]
  2. TAZOBACTAM [Concomitant]
  3. LEVOFLOXACIN [Concomitant]
  4. CLOPIDOGREL [Suspect]
     Indication: CORONARY ARTERIAL STENT INSERTION
  5. PIPERACILLIN [Concomitant]
  6. CARVEDILOL [Concomitant]

REACTIONS (5)
  - DYSPNOEA [None]
  - PNEUMONIA BACTERIAL [None]
  - PYREXIA [None]
  - LEUKOCYTOSIS [None]
  - ACUTE GENERALISED EXANTHEMATOUS PUSTULOSIS [None]
